FAERS Safety Report 19731203 (Version 1)
Quarter: 2021Q3

REPORT INFORMATION
  Report Type: Other
  Country: None (occurrence: GB)
  Receive Date: 20210821
  Receipt Date: 20210821
  Transmission Date: 20211014
  Serious: Yes (Other)
  Sender: FDA-Public Use
  Company Number: GB-AIR PRODUCTS AND CHEMICALS, INC. -2115454

PATIENT
  Age: 45 Year
  Sex: Male
  Weight: 69 kg

DRUGS (1)
  1. OXYGEN. [Suspect]
     Active Substance: OXYGEN
     Indication: TRIGGER FINGER
     Dates: start: 20210320

REACTIONS (5)
  - Headache [None]
  - Pain in extremity [None]
  - Influenza [None]
  - Ageusia [None]
  - Anosmia [None]
